FAERS Safety Report 12059394 (Version 1)
Quarter: 2016Q1

REPORT INFORMATION
  Report Type: Spontaneous
  Country: US (occurrence: None)
  Receive Date: 20160209
  Receipt Date: 20160209
  Transmission Date: 20160526
  Serious: Yes (Life-Threatening)
  Sender: FDA-Public Use
  Company Number: None

PATIENT
  Age: 28 Year
  Sex: Male
  Weight: 62.9 kg

DRUGS (2)
  1. OXYCODONE [Suspect]
     Active Substance: OXYCODONE
     Indication: PAIN
     Route: 048
     Dates: start: 20160115, end: 20160122
  2. HYDROMORPHONE [Suspect]
     Active Substance: HYDROMORPHONE
     Route: 042
     Dates: start: 20160115, end: 20160116

REACTIONS (3)
  - Sedation [None]
  - Overdose [None]
  - Hypotension [None]

NARRATIVE: CASE EVENT DATE: 20160115
